FAERS Safety Report 7240989-9 (Version None)
Quarter: 2011Q1

REPORT INFORMATION
  Report Type: 
  Country: None (occurrence: None)
  Receive Date: 20110124
  Receipt Date: 20110113
  Transmission Date: 20110831
  Serious: Yes (Hospitalization)
  Sender: FDA-Public Use
  Company Number: JP-ASTRAZENECA-2010SE61123

PATIENT
  Age: 78 Year
  Sex: Female

DRUGS (2)
  1. IRESSA [Suspect]
     Route: 048
     Dates: start: 20101104, end: 20101229
  2. IRESSA [Suspect]
     Route: 048
     Dates: start: 20101229

REACTIONS (4)
  - NAUSEA [None]
  - DIARRHOEA [None]
  - VOMITING [None]
  - PYREXIA [None]
